FAERS Safety Report 22161513 (Version 1)
Quarter: 2023Q1

REPORT INFORMATION
  Report Type: Spontaneous
  Country: US (occurrence: None)
  Receive Date: 20230330
  Receipt Date: 20230330
  Transmission Date: 20230417
  Serious: Yes (Hospitalization)
  Sender: FDA-Public Use
  Company Number: None

PATIENT
  Sex: Female
  Weight: 50.8 kg

DRUGS (15)
  1. TAFINLAR [Suspect]
     Active Substance: DABRAFENIB MESYLATE
     Indication: Cholangiocarcinoma
     Dosage: 100MG/50MG AM/PM ORAL
     Route: 048
  2. MEKINIST [Suspect]
     Active Substance: TRAMETINIB DIMETHYL SULFOXIDE
     Indication: Cholangiocarcinoma
     Dosage: 1MG DAILY ORAL?
     Route: 048
  3. CRESTOR [Concomitant]
  4. ENOXAPARIN [Concomitant]
  5. GABAPENTIN [Concomitant]
  6. GEMCITABINE [Concomitant]
  7. GRANISETRON [Concomitant]
  8. LIPITOR [Concomitant]
  9. LOMOTIL [Concomitant]
     Active Substance: ATROPINE SULFATE\DIPHENOXYLATE HYDROCHLORIDE
  10. LOTRAL [Concomitant]
  11. MULTIVITAMIN [Concomitant]
  12. NORVASC [Concomitant]
  13. VITAMIN D3 [Concomitant]
  14. XARELTO [Concomitant]
  15. ZOFRAN [Concomitant]

REACTIONS (1)
  - Urinary tract infection [None]
